FAERS Safety Report 9182948 (Version 1)
Quarter: 2013Q1

REPORT INFORMATION
  Report Type: Spontaneous
  Country: US (occurrence: US)
  Receive Date: 20130322
  Receipt Date: 20130322
  Transmission Date: 20140127
  Serious: No
  Sender: FDA-Public Use
  Company Number: US-BRISTOL-MYERS SQUIBB COMPANY-16416257

PATIENT
  Age: 57 Year
  Sex: Female

DRUGS (4)
  1. ERBITUX [Suspect]
     Dosage: STARTED 3WKS AGO
  2. HYDROCHLOROTHIAZIDE [Concomitant]
  3. PRILOSEC [Concomitant]
  4. GABAPENTIN [Concomitant]

REACTIONS (3)
  - Red blood cell abnormality [Unknown]
  - Blood potassium decreased [Unknown]
  - Malaise [Unknown]
